FAERS Safety Report 13651938 (Version 1)
Quarter: 2017Q2

REPORT INFORMATION
  Report Type: Spontaneous
  Country: US (occurrence: US)
  Receive Date: 20170614
  Receipt Date: 20170614
  Transmission Date: 20170830
  Serious: Yes (Hospitalization, Other)
  Sender: FDA-Public Use
  Company Number: US-GLAXOSMITHKLINE-US2017088465

PATIENT
  Age: 67 Year
  Sex: Female

DRUGS (2)
  1. GAVISCON [Suspect]
     Active Substance: ALUMINUM HYDROXIDE\MAGNESIUM CARBONATE
     Indication: DYSPEPSIA
     Dosage: UNK, WAS TAKING THE TABLETS DAILY
  2. GAVISCON [Suspect]
     Active Substance: ALUMINUM HYDROXIDE\MAGNESIUM CARBONATE
     Indication: DYSPEPSIA
     Dosage: UNK

REACTIONS (6)
  - Gastric bypass [Unknown]
  - Incorrect drug administration duration [Unknown]
  - Vomiting [Unknown]
  - Drug ineffective [Unknown]
  - Regurgitation [Unknown]
  - Gastrointestinal ulcer [Unknown]
